FAERS Safety Report 5640585-0 (Version None)
Quarter: 2008Q1

REPORT INFORMATION
  Report Type: 
  Country: None (occurrence: None)
  Receive Date: 20080227
  Receipt Date: 20080219
  Transmission Date: 20080703
  Serious: Yes (Other)
  Sender: FDA-Public Use
  Company Number: PHRM2008FR00834

PATIENT
  Sex: Male

DRUGS (1)
  1. GLEEVEC [Suspect]
     Dosage: UNK, UNK
     Route: 048
     Dates: end: 20080101

REACTIONS (3)
  - CYTOLYTIC HEPATITIS [None]
  - SERUM FERRITIN INCREASED [None]
  - TRANSAMINASES INCREASED [None]
